FAERS Safety Report 8513134-7 (Version None)
Quarter: 2012Q3

REPORT INFORMATION
  Report Type: 
  Country: None (occurrence: None)
  Receive Date: 20120716
  Receipt Date: 20120703
  Transmission Date: 20120928
  Serious: Yes (Hospitalization)
  Sender: FDA-Public Use
  Company Number: US-ELI_LILLY_AND_COMPANY-US201204001973

PATIENT
  Sex: Male

DRUGS (3)
  1. FORTEO [Suspect]
     Dosage: 20 UG, QD
     Dates: start: 20120301
  2. FORTEO [Suspect]
     Indication: OSTEOPOROSIS
     Dosage: 20 UG, QD
     Dates: start: 20100101, end: 20100101
  3. FORTEO [Suspect]
     Dosage: 20 UG, QD
     Route: 065

REACTIONS (8)
  - SPINAL FUSION SURGERY [None]
  - RASH MACULAR [None]
  - ARTHRALGIA [None]
  - SPINAL FRACTURE [None]
  - DIZZINESS [None]
  - INJECTION SITE ERYTHEMA [None]
  - NAUSEA [None]
  - INJECTION SITE RASH [None]
